FAERS Safety Report 5535119-5 (Version None)
Quarter: 2007Q4

REPORT INFORMATION
  Report Type: 
  Country: None (occurrence: None)
  Receive Date: 20071203
  Receipt Date: 20071115
  Transmission Date: 20080405
  Serious: Yes (Death, Hospitalization)
  Sender: FDA-Public Use
  Company Number: 2006JP003939

PATIENT
  Age: 53 Year
  Sex: Female
  Weight: 52 kg

DRUGS (7)
  1. PROGRAF [Suspect]
     Indication: RENAL TRANSPLANT
     Dosage: 3 MG, BID, ORAL
     Route: 048
     Dates: start: 20041122, end: 20050411
  2. CELLCEPT [Suspect]
     Indication: RENAL TRANSPLANT
     Dosage: 750 MG, BID, ORAL
     Route: 048
     Dates: start: 20041122, end: 20050411
  3. MEDROL [Suspect]
     Indication: RENAL TRANSPLANT
     Dosage: 8 MG, UID/QD, ORAL
     Route: 048
     Dates: start: 20041122
  4. SIMULECT [Suspect]
     Indication: RENAL TRANSPLANT
     Dosage: 20 MG, UID/QD, IV NOS
     Route: 042
     Dates: start: 20041201, end: 20041201
  5. SIMULECT [Suspect]
     Indication: RENAL TRANSPLANT
     Dosage: 20 MG, UID/QD, IV NOS
     Route: 042
     Dates: start: 20041205, end: 20041205
  6. CONIEL (BENIDIPINE HYDROCHLORIDE) TABLET [Concomitant]
  7. ALOSITOL TABLET [Concomitant]

REACTIONS (13)
  - ANOREXIA [None]
  - BLOOD CALCIUM INCREASED [None]
  - DIFFUSE LARGE B-CELL LYMPHOMA [None]
  - GAMMA-GLUTAMYLTRANSFERASE INCREASED [None]
  - LYMPHADENOPATHY [None]
  - LYMPHOPROLIFERATIVE DISORDER [None]
  - MALAISE [None]
  - METASTASES TO BONE [None]
  - METASTASES TO LIVER [None]
  - PAIN [None]
  - RENAL IMPAIRMENT [None]
  - RENAL NEOPLASM [None]
  - SPLENECTOMY [None]
